FAERS Safety Report 6940761-0 (Version None)
Quarter: 2010Q3

REPORT INFORMATION
  Report Type: 
  Country: None (occurrence: None)
  Receive Date: 20100825
  Receipt Date: 20100409
  Transmission Date: 20110219
  Serious: No
  Sender: FDA-Public Use
  Company Number: US-MYLANLABS-2010S1005168

PATIENT
  Age: 52 Year
  Sex: Male
  Weight: 77.11 kg

DRUGS (11)
  1. MERCAPTOPURINE [Suspect]
     Indication: PROCTITIS
     Route: 048
     Dates: start: 20100101, end: 20100301
  2. MERCAPTOPURINE [Suspect]
     Route: 048
     Dates: start: 20100301, end: 20100321
  3. MERCAPTOPURINE [Suspect]
     Route: 048
     Dates: start: 20100322
  4. SIMVASTATIN [Concomitant]
  5. CIALIS [Concomitant]
  6. KAPIDEX [Concomitant]
  7. LIALDA [Concomitant]
  8. GLUCOSAMINE + CHONDROITIN [Concomitant]
  9. VITAMIN B6 [Concomitant]
  10. CALCIUM [Concomitant]
  11. VITAMIN D [Concomitant]

REACTIONS (4)
  - HYPOAESTHESIA [None]
  - PARAESTHESIA [None]
  - PSYCHOMOTOR HYPERACTIVITY [None]
  - TENSION [None]
